FAERS Safety Report 16113159 (Version 1)
Quarter: 2019Q1

REPORT INFORMATION
  Report Type: Spontaneous
  Country: FR (occurrence: FR)
  Receive Date: 20190325
  Receipt Date: 20190325
  Transmission Date: 20190418
  Serious: Yes (Death)
  Sender: FDA-Public Use
  Company Number: FR-PFIZER INC-2019123708

PATIENT
  Age: 62 Year
  Sex: Female

DRUGS (10)
  1. CYAMEMAZINE [Suspect]
     Active Substance: CYAMEMAZINE
     Dosage: UNK
     Route: 048
     Dates: end: 201808
  2. MORPHINE [Suspect]
     Active Substance: MORPHINE
     Dosage: UNK
     Route: 048
     Dates: end: 201808
  3. VALPROIC ACID. [Suspect]
     Active Substance: VALPROIC ACID
     Dosage: UNK
     Route: 048
     Dates: end: 201808
  4. PARACETAMOL [Suspect]
     Active Substance: ACETAMINOPHEN
     Dosage: UNK
     Route: 048
     Dates: end: 201808
  5. SERTRALINE HCL [Suspect]
     Active Substance: SERTRALINE HYDROCHLORIDE
     Dosage: UNK
     Route: 065
     Dates: end: 201808
  6. TRAMADOL HYDROCHLORIDE. [Suspect]
     Active Substance: TRAMADOL HYDROCHLORIDE
     Dosage: UNK
     Route: 065
     Dates: end: 201808
  7. OXAZEPAM. [Suspect]
     Active Substance: OXAZEPAM
     Dosage: UNK
     Route: 065
     Dates: end: 201808
  8. CODEINE [Suspect]
     Active Substance: CODEINE
     Dosage: UNK
     Route: 048
  9. ZOPICLONE [Suspect]
     Active Substance: ZOPICLONE
     Dosage: UNK
     Route: 065
     Dates: end: 201808
  10. DIAZEPAM. [Suspect]
     Active Substance: DIAZEPAM
     Dosage: UNK
     Route: 065
     Dates: end: 201808

REACTIONS (2)
  - Drug abuse [Fatal]
  - Asphyxia [Fatal]
